FAERS Safety Report 5118429-5 (Version None)
Quarter: 2006Q4

REPORT INFORMATION
  Report Type: 
  Country: None (occurrence: None)
  Receive Date: 20061002
  Receipt Date: 20060109
  Transmission Date: 20070319
  Serious: Yes (Hospitalization, Other)
  Sender: FDA-Public Use
  Company Number: US-BAYER-200610199BWH

PATIENT
  Age: 74 Year
  Sex: Male
  Weight: 88 kg

DRUGS (34)
  1. SORAFENIB [Suspect]
     Indication: METASTATIC RENAL CELL CARCINOMA
     Dosage: TOTAL DAILY DOSE: 400 MG  UNIT DOSE: 200 MG
     Route: 048
     Dates: start: 20060209, end: 20060217
  2. SORAFENIB [Suspect]
     Dosage: UNIT DOSE: 200 MG
     Route: 048
     Dates: start: 20060301
  3. SORAFENIB [Suspect]
     Dosage: TOTAL DAILY DOSE: 800 MG  UNIT DOSE: 200 MG
     Route: 048
     Dates: start: 20051109
  4. SORAFENIB [Suspect]
     Dosage: TOTAL DAILY DOSE: 400 MG  UNIT DOSE: 200 MG
     Route: 048
     Dates: start: 20060109, end: 20060204
  5. MONOPRIL [Concomitant]
     Indication: HYPERTENSION
     Route: 048
     Dates: start: 20041210
  6. TOPROL-XL [Concomitant]
     Indication: CARDIOMYOPATHY
     Route: 048
     Dates: start: 20041210
  7. ZOCOR [Concomitant]
     Indication: HYPERLIPIDAEMIA
     Route: 048
     Dates: start: 20041210
  8. FERROUS SULFATE TAB [Concomitant]
     Indication: ANAEMIA
     Route: 048
     Dates: start: 20041212
  9. ATIVAN [Concomitant]
     Indication: ANXIETY
     Route: 048
     Dates: start: 20050620
  10. LEXAPRO [Concomitant]
     Indication: DEPRESSION
     Route: 048
     Dates: start: 20050620
  11. ZYRTEC [Concomitant]
     Indication: DERMATITIS
     Route: 048
  12. KENALOG [Concomitant]
     Indication: DERMATITIS
     Route: 030
     Dates: start: 20051129, end: 20051129
  13. KENALOG [Concomitant]
     Route: 030
     Dates: start: 20051214, end: 20051214
  14. HALOG 1% [Concomitant]
     Indication: DERMATITIS
     Route: 061
     Dates: start: 20051229, end: 20060129
  15. ALLEGRA CD [Concomitant]
     Indication: DERMATITIS
     Dates: start: 20051207
  16. LOVENOX [Concomitant]
     Indication: THROMBOSIS
     Route: 058
     Dates: start: 20060103, end: 20060103
  17. LOVENOX [Concomitant]
     Route: 058
     Dates: start: 20060202
  18. LOVENOX [Concomitant]
     Route: 058
     Dates: start: 20060104, end: 20060101
  19. COUMADIN [Concomitant]
     Indication: THROMBOSIS
     Route: 048
     Dates: start: 20060126, end: 20060129
  20. COUMADIN [Concomitant]
     Route: 048
     Dates: start: 20060118, end: 20060124
  21. COUMADIN [Concomitant]
     Route: 048
     Dates: start: 20060113, end: 20060117
  22. COUMADIN [Concomitant]
     Route: 048
     Dates: start: 20060103, end: 20060108
  23. COUMADIN [Concomitant]
     Route: 048
     Dates: start: 20060109, end: 20060112
  24. TRIAMCINOLONE [Concomitant]
     Indication: DERMATITIS
     Route: 061
     Dates: start: 20060130
  25. PREDNISONE [Concomitant]
     Indication: BRONCHOSPASM
     Route: 048
     Dates: start: 20060215, end: 20060216
  26. PREDNISONE [Concomitant]
     Route: 048
     Dates: start: 20060210, end: 20060213
  27. PREDNISONE [Concomitant]
     Route: 048
     Dates: start: 20060208, end: 20060209
  28. HYZAAR [Concomitant]
     Indication: HYPERTENSION
     Route: 048
     Dates: start: 20060221
  29. HYZAAR [Concomitant]
     Route: 048
     Dates: start: 20060130, end: 20060220
  30. SODIUM PHOSPHATES [Concomitant]
     Indication: MINERAL SUPPLEMENTATION
     Route: 048
     Dates: start: 20060117, end: 20060215
  31. NOVOLIN R [Concomitant]
     Indication: HYPERGLYCAEMIA
     Route: 058
     Dates: start: 20060217
  32. MINERIN [Concomitant]
     Indication: DERMATITIS
     Route: 061
     Dates: start: 20060208
  33. METFORMIN HCL [Concomitant]
     Indication: HYPERGLYCAEMIA
     Route: 048
     Dates: start: 20060220
  34. NEUTRA-PHOS [Concomitant]
     Indication: MINERAL SUPPLEMENTATION
     Route: 048
     Dates: start: 20060217

REACTIONS (9)
  - BRONCHOSPASM [None]
  - COUGH [None]
  - DEEP VEIN THROMBOSIS [None]
  - DRY SKIN [None]
  - INTERNATIONAL NORMALISED RATIO INCREASED [None]
  - PULMONARY EMBOLISM [None]
  - RASH ERYTHEMATOUS [None]
  - SKIN EXFOLIATION [None]
  - STRIDOR [None]
